FAERS Safety Report 4519710-0 (Version None)
Quarter: 2004Q4

REPORT INFORMATION
  Report Type: 
  Country: None (occurrence: None)
  Receive Date: 20041206
  Receipt Date: 20041101
  Transmission Date: 20050328
  Serious: Yes (Death)
  Sender: FDA-Public Use
  Company Number: PHBS2004JP14751

PATIENT
  Age: 80 Year
  Sex: Male

DRUGS (4)
  1. CRAVIT [Concomitant]
     Dates: start: 20041001
  2. VOLTAREN [Suspect]
     Indication: CANCER PAIN
     Dosage: 100 MG/DAY
     Route: 054
     Dates: start: 20041001, end: 20041101
  3. KLARICID [Concomitant]
     Route: 048
     Dates: start: 20041001, end: 20041029
  4. BUP-4 [Concomitant]
     Route: 048
     Dates: start: 20041001, end: 20041029

REACTIONS (4)
  - BLOOD CREATINE PHOSPHOKINASE INCREASED [None]
  - BLOOD POTASSIUM INCREASED [None]
  - DEATH [None]
  - PAIN [None]
